FAERS Safety Report 5707315-5 (Version None)
Quarter: 2008Q2

REPORT INFORMATION
  Report Type: 
  Country: None (occurrence: None)
  Receive Date: 20080416
  Receipt Date: 20080320
  Transmission Date: 20081010
  Serious: Yes (Death, Hospitalization)
  Sender: FDA-Public Use
  Company Number: US-BAXTER-2008BH003483

PATIENT
  Age: 45 Year
  Sex: Female

DRUGS (1)
  1. DIANEAL [Suspect]
     Indication: RENAL FAILURE CHRONIC
     Route: 033
     Dates: start: 20060206, end: 20080101

REACTIONS (5)
  - DYSPNOEA [None]
  - FUNGAL SEPSIS [None]
  - MUSCULOSKELETAL CHEST PAIN [None]
  - PERITONITIS BACTERIAL [None]
  - THERAPY CESSATION [None]
